FAERS Safety Report 12133479 (Version 3)
Quarter: 2016Q2

REPORT INFORMATION
  Report Type: Spontaneous
  Country: AU (occurrence: AU)
  Receive Date: 20160301
  Receipt Date: 20160628
  Transmission Date: 20160815
  Serious: Yes (Death)
  Sender: FDA-Public Use
  Company Number: AU-009507513-1508AUS013800

PATIENT
  Age: 47 Year
  Sex: Male

DRUGS (1)
  1. KEYTRUDA [Suspect]
     Active Substance: PEMBROLIZUMAB
     Indication: EWING^S SARCOMA
     Dosage: UNK

REACTIONS (2)
  - Death [Fatal]
  - Off label use [Fatal]

NARRATIVE: CASE EVENT DATE: 201508
